FAERS Safety Report 4848719-2 (Version None)
Quarter: 2005Q4

REPORT INFORMATION
  Report Type: 
  Country: None (occurrence: None)
  Receive Date: 20051208
  Receipt Date: 20051128
  Transmission Date: 20060501
  Serious: Yes (Hospitalization)
  Sender: FDA-Public Use
  Company Number: AU-BRISTOL-MYERS SQUIBB COMPANY-13193826

PATIENT
  Age: 38 Year
  Weight: 78 kg

DRUGS (8)
  1. ETOPOPHOS FOR INJ [Suspect]
     Route: 042
     Dates: start: 20040324, end: 20040326
  2. CARBOPLATIN [Suspect]
     Dates: start: 20040325
  3. MESNA [Suspect]
     Route: 042
     Dates: start: 20040324, end: 20040326
  4. MESNA TABS [Suspect]
     Route: 048
     Dates: start: 20040324, end: 20040326
  5. HOLOXAN [Suspect]
     Route: 042
     Dates: start: 20040324, end: 20040326
  6. ATIVAN [Suspect]
     Route: 048
     Dates: start: 20040325
  7. COLOXYL + SENNA [Suspect]
     Route: 048
     Dates: start: 20040325
  8. CODALGIN FORTE [Suspect]
     Route: 048
     Dates: start: 20040325

REACTIONS (2)
  - CYSTITIS HAEMORRHAGIC [None]
  - HAEMATURIA [None]
